FAERS Safety Report 16736656 (Version 1)
Quarter: 2019Q3

REPORT INFORMATION
  Report Type: Spontaneous
  Country: US (occurrence: US)
  Receive Date: 20190823
  Receipt Date: 20190823
  Transmission Date: 20191005
  Serious: Yes (Other)
  Sender: FDA-Public Use
  Company Number: US-JNJFOC-20190827910

PATIENT
  Age: 47 Year
  Sex: Male

DRUGS (5)
  1. EFFEXOR [Suspect]
     Active Substance: VENLAFAXINE HYDROCHLORIDE
     Indication: PRODUCT USED FOR UNKNOWN INDICATION
     Route: 065
  2. RISPERDAL [Suspect]
     Active Substance: RISPERIDONE
     Indication: PSYCHOTIC DISORDER
  3. RISPERDAL [Suspect]
     Active Substance: RISPERIDONE
     Indication: SCHIZOPHRENIA
  4. RISPERDAL [Suspect]
     Active Substance: RISPERIDONE
     Indication: HALLUCINATION
     Route: 048
     Dates: start: 20030924, end: 20160906
  5. RISPERDAL [Suspect]
     Active Substance: RISPERIDONE
     Indication: PARANOIA

REACTIONS (8)
  - Weight increased [Unknown]
  - Breast discolouration [Unknown]
  - Back pain [Unknown]
  - Treatment noncompliance [Unknown]
  - Extrapyramidal disorder [Unknown]
  - Type 2 diabetes mellitus [Unknown]
  - Dyslipidaemia [Unknown]
  - Loss of libido [Unknown]

NARRATIVE: CASE EVENT DATE: 20041015
